FAERS Safety Report 15166237 (Version 1)
Quarter: 2018Q3

REPORT INFORMATION
  Report Type: Spontaneous
  Country: US (occurrence: US)
  Receive Date: 20180719
  Receipt Date: 20180719
  Transmission Date: 20181010
  Serious: No
  Sender: FDA-Public Use
  Company Number: US-OTSUKA-2018_009972

PATIENT
  Sex: Female

DRUGS (3)
  1. REXULTI [Suspect]
     Active Substance: BREXPIPRAZOLE
     Indication: BORDERLINE PERSONALITY DISORDER
     Dosage: 1 MG, UNK (THE SECOND WEEK)
     Route: 065
     Dates: start: 2018, end: 2018
  2. REXULTI [Suspect]
     Active Substance: BREXPIPRAZOLE
     Indication: BIPOLAR DISORDER
     Dosage: 0.5 MG, UNK
     Route: 065
     Dates: start: 201801, end: 2018
  3. REXULTI [Suspect]
     Active Substance: BREXPIPRAZOLE
     Dosage: 2 MG, UNK
     Route: 065
     Dates: start: 2018, end: 2018

REACTIONS (8)
  - Incorrect dose administered [Unknown]
  - Arthralgia [Recovering/Resolving]
  - Muscle twitching [Recovering/Resolving]
  - Musculoskeletal stiffness [Recovering/Resolving]
  - Extrapyramidal disorder [Recovering/Resolving]
  - Muscle spasms [Recovering/Resolving]
  - Akathisia [Recovering/Resolving]
  - Product use in unapproved indication [Unknown]

NARRATIVE: CASE EVENT DATE: 201801
